FAERS Safety Report 8125788-8 (Version None)
Quarter: 2012Q1

REPORT INFORMATION
  Report Type: 
  Country: None (occurrence: None)
  Receive Date: 20120209
  Receipt Date: 20120201
  Transmission Date: 20120608
  Serious: Yes (Hospitalization)
  Sender: FDA-Public Use
  Company Number: PHHY2012GB008559

PATIENT
  Age: 61 Year
  Sex: Female

DRUGS (7)
  1. OMEPRAZOLE [Concomitant]
     Dosage: 20 MG, QD
  2. RAMIPRIL [Concomitant]
     Dosage: 5 MG, QD
  3. MEBEVERINE [Concomitant]
     Dosage: 200 MG, QD
  4. FLUOXETINE [Suspect]
  5. FLUOXETINE [Concomitant]
     Dosage: 20 MG, QD
  6. BENDROFLUMETHIAZIDE [Suspect]
     Dosage: 2.5 MG, QD
  7. ROSUVASTATIN [Concomitant]
     Dosage: 20 MG, QD

REACTIONS (7)
  - CONFUSIONAL STATE [None]
  - INAPPROPRIATE ANTIDIURETIC HORMONE SECRETION [None]
  - HYPONATRAEMIA [None]
  - HYPOKALAEMIA [None]
  - PYREXIA [None]
  - VOMITING [None]
  - DIARRHOEA [None]
